FAERS Safety Report 24654540 (Version 3)
Quarter: 2024Q4

REPORT INFORMATION
  Report Type: Report from Study
  Country: US (occurrence: US)
  Receive Date: 20241122
  Receipt Date: 20241216
  Transmission Date: 20250115
  Serious: Yes (Disabling, Other)
  Sender: ABBVIE
  Company Number: US-ABBVIE-6013787

PATIENT
  Age: 40 Year
  Sex: Female
  Weight: 81.646 kg

DRUGS (1)
  1. RINVOQ [Suspect]
     Active Substance: UPADACITINIB
     Indication: Psoriatic arthropathy
     Dosage: 15 MILLIGRAM
     Route: 048
     Dates: start: 20230523

REACTIONS (3)
  - Psoriatic arthropathy [Recovering/Resolving]
  - Pain [Unknown]
  - Rheumatoid arthritis [Recovering/Resolving]
